FAERS Safety Report 4767582-1 (Version None)
Quarter: 2005Q3

REPORT INFORMATION
  Report Type: 
  Country: None (occurrence: None)
  Receive Date: 20050913
  Receipt Date: 20050419
  Transmission Date: 20060218
  Serious: Yes (Disabling)
  Sender: FDA-Public Use
  Company Number: US-MERCK-0504USA03714

PATIENT
  Age: 46 Year
  Sex: Male
  Weight: 159 kg

DRUGS (9)
  1. VIOXX [Suspect]
     Indication: ARTHRITIS
     Route: 048
     Dates: start: 20030201, end: 20040930
  2. ENALAPRIL MALEATE [Concomitant]
     Route: 065
     Dates: start: 20020101
  3. LIPITOR [Concomitant]
     Indication: BLOOD CHOLESTEROL INCREASED
     Route: 065
     Dates: start: 20020901
  4. ASPIRIN [Concomitant]
     Route: 065
     Dates: start: 20020901
  5. PLAVIX [Concomitant]
     Route: 065
     Dates: start: 20020901
  6. TOPROL-XL [Concomitant]
     Route: 065
     Dates: start: 20020101
  7. NITROSTAT [Concomitant]
     Route: 065
     Dates: start: 20020101
  8. VIAGRA [Concomitant]
     Indication: ERECTILE DYSFUNCTION
     Route: 065
     Dates: start: 20020101
  9. TYLENOL [Concomitant]
     Indication: ARTHRITIS
     Route: 065
     Dates: start: 19800101

REACTIONS (5)
  - CHEST PAIN [None]
  - DYSPNOEA [None]
  - HYPERHIDROSIS [None]
  - MYOCARDIAL INFARCTION [None]
  - POLYTRAUMATISM [None]
